FAERS Safety Report 16154944 (Version 1)
Quarter: 2019Q2

REPORT INFORMATION
  Report Type: Spontaneous
  Country: US (occurrence: US)
  Receive Date: 20190403
  Receipt Date: 20190403
  Transmission Date: 20190711
  Serious: Yes (Hospitalization, Other)
  Sender: FDA-Public Use
  Company Number: US-SHIRE-US201910655

PATIENT
  Age: 68 Year
  Sex: Female

DRUGS (1)
  1. GATTEX [Suspect]
     Active Substance: TEDUGLUTIDE\WATER
     Indication: PRODUCT USED FOR UNKNOWN INDICATION
     Dosage: 0.2600, 1X/DAY:QD
     Route: 058
     Dates: start: 20160609

REACTIONS (1)
  - Vascular device infection [Recovering/Resolving]

NARRATIVE: CASE EVENT DATE: 20190320
